FAERS Safety Report 10522090 (Version 1)
Quarter: 2014Q4

REPORT INFORMATION
  Report Type: Spontaneous
  Country: US (occurrence: None)
  Receive Date: 20141014
  Receipt Date: 20141014
  Transmission Date: 20150528
  Serious: Yes (Hospitalization, Other)
  Sender: FDA-Public Use
  Company Number: 2014-US-012711

PATIENT
  Age: 76 Year
  Sex: Male

DRUGS (2)
  1. XYREM [Suspect]
     Active Substance: SODIUM OXYBATE
     Indication: SOMNOLENCE
     Route: 048
     Dates: start: 201104, end: 20141004
  2. XYREM [Suspect]
     Active Substance: SODIUM OXYBATE
     Indication: NARCOLEPSY
     Route: 048
     Dates: start: 201104, end: 20141004

REACTIONS (10)
  - Aphasia [None]
  - Confusional state [None]
  - Memory impairment [None]
  - Aggression [None]
  - Tremor [None]
  - Dyspnoea [None]
  - Miosis [None]
  - Vital functions abnormal [None]
  - Swollen tongue [None]
  - Anger [None]

NARRATIVE: CASE EVENT DATE: 201409
